FAERS Safety Report 5480531-6 (Version None)
Quarter: 2007Q4

REPORT INFORMATION
  Report Type: 
  Country: None (occurrence: None)
  Receive Date: 20071004
  Receipt Date: 20071004
  Transmission Date: 20080405
  Serious: Yes (Hospitalization)
  Sender: FDA-Public Use
  Company Number: None

PATIENT
  Sex: Male
  Weight: 109 kg

DRUGS (2)
  1. FLUOROURACIL [Suspect]
     Dosage: 5220 MG
     Dates: end: 20070926
  2. ELOXATIN [Suspect]
     Dosage: 151 MG
     Dates: end: 20070926

REACTIONS (6)
  - ACNE [None]
  - ARTHRALGIA [None]
  - CELLULITIS [None]
  - FOLLICULITIS [None]
  - INJURY [None]
  - SCAB [None]
